FAERS Safety Report 8830223 (Version 1)
Quarter: 2012Q4

REPORT INFORMATION
  Report Type: Spontaneous
  Country: US (occurrence: None)
  Receive Date: 20121009
  Receipt Date: 20121009
  Transmission Date: 20130627
  Serious: Yes (Death)
  Sender: FDA-Public Use
  Company Number: None

PATIENT
  Age: 77 Year
  Sex: Female
  Weight: 63.5 kg

DRUGS (1)
  1. METHYLPREDNISOLONE [Suspect]
     Indication: BACK PAIN
     Route: 008
     Dates: start: 20120624, end: 20120831

REACTIONS (6)
  - Nausea [None]
  - Neck pain [None]
  - Musculoskeletal stiffness [None]
  - Headache [None]
  - Fungal infection [None]
  - Back pain [None]
